FAERS Safety Report 7328581-9 (Version None)
Quarter: 2011Q1

REPORT INFORMATION
  Report Type: 
  Country: None (occurrence: None)
  Receive Date: 20110225
  Receipt Date: 20110225
  Transmission Date: 20110831
  Serious: Yes (Other)
  Sender: FDA-Public Use
  Company Number: None

PATIENT
  Age: 74 Year
  Sex: Female
  Weight: 95.2554 kg

DRUGS (4)
  1. AMITRIPTYLINE HCL [Suspect]
     Indication: SEDATIVE THERAPY
     Dosage: ONE 25MG AT BEDTIME PO
     Route: 048
     Dates: start: 20090101, end: 20110211
  2. AMITRIPTYLINE HCL [Suspect]
     Indication: BIPOLAR DISORDER
     Dosage: ONE 25MG AT BEDTIME PO
     Route: 048
     Dates: start: 20090101, end: 20110211
  3. AMITRIPTYLINE HCL [Suspect]
     Indication: SEDATIVE THERAPY
     Dosage: ONE 75MG AT BEDTIME PO
     Route: 048
     Dates: start: 19900315, end: 20110124
  4. AMITRIPTYLINE HCL [Suspect]
     Indication: BIPOLAR DISORDER
     Dosage: ONE 75MG AT BEDTIME PO
     Route: 048
     Dates: start: 19900315, end: 20110124

REACTIONS (3)
  - ASTHENIA [None]
  - DRUG WITHDRAWAL SYNDROME [None]
  - TREMOR [None]
